FAERS Safety Report 4980999-5 (Version None)
Quarter: 2006Q2

REPORT INFORMATION
  Report Type: 
  Country: None (occurrence: None)
  Receive Date: 20060418
  Receipt Date: 20060328
  Transmission Date: 20061013
  Serious: Yes (Hospitalization)
  Sender: FDA-Public Use
  Company Number: US200603003600

PATIENT
  Sex: Male

DRUGS (8)
  1. GEMZAR (GEMCITABINE HYDOCHLORIDE) VIAL [Suspect]
     Indication: PANCREATIC CARCINOMA
     Dosage: OTHER, INTRAVENOUS
     Route: 042
     Dates: start: 20060101, end: 20060317
  2. FENTANYL [Concomitant]
  3. CALCIUM GLUCONATE [Concomitant]
  4. MVI /USA/ (VITAMINS NOS) [Concomitant]
  5. ZOCOR [Concomitant]
  6. PHENERGAN (PROMETHAZINE HYDROCHLORIDE) [Concomitant]
  7. GLUCOSAMINE [Concomitant]
  8. LORTAB [Concomitant]

REACTIONS (4)
  - DECREASED APPETITE [None]
  - HICCUPS [None]
  - INSOMNIA [None]
  - WEIGHT DECREASED [None]
